FAERS Safety Report 21838686 (Version 1)
Quarter: 2023Q1

REPORT INFORMATION
  Report Type: Spontaneous
  Country: JP (occurrence: None)
  Receive Date: 20230109
  Receipt Date: 20230109
  Transmission Date: 20230418
  Serious: Yes (Death, Other)
  Sender: FDA-Public Use
  Company Number: 2023A003285

PATIENT
  Age: 83 Year
  Sex: Male
  Weight: 51 kg

DRUGS (16)
  1. NEXIUM [Suspect]
     Active Substance: ESOMEPRAZOLE MAGNESIUM
     Route: 048
     Dates: start: 20220330, end: 20220506
  2. ATORVASTATIN [Suspect]
     Active Substance: ATORVASTATIN
     Route: 048
     Dates: start: 20220329, end: 20220506
  3. ENALAPRIL [Suspect]
     Active Substance: ENALAPRIL
     Route: 048
     Dates: start: 20220409, end: 20220506
  4. HERBALS [Suspect]
     Active Substance: HERBALS
     Route: 065
     Dates: start: 20220406, end: 20220506
  5. JANUVIA [Concomitant]
     Active Substance: SITAGLIPTIN PHOSPHATE
     Dosage: DOSE UNKNOWN
     Route: 048
     Dates: end: 20220520
  6. ASPIRIN [Concomitant]
     Active Substance: ASPIRIN
     Dosage: DOSE UNKNOWN
     Route: 048
     Dates: start: 20220329, end: 20220520
  7. ESZOPICLONE [Concomitant]
     Active Substance: ESZOPICLONE
     Dosage: DOSE UNKNOWN
     Route: 048
     Dates: start: 20220329, end: 20220519
  8. PRASUGREL HYDROCHLORIDE [Concomitant]
     Active Substance: PRASUGREL HYDROCHLORIDE
     Dosage: DOSE UNKNOWN
     Route: 048
     Dates: start: 20220330, end: 20220520
  9. SAMSCA [Concomitant]
     Active Substance: TOLVAPTAN
     Dosage: DOSE UNKNOWN
     Route: 048
     Dates: start: 20220330, end: 20220520
  10. SPIRONOLACTONE [Concomitant]
     Active Substance: SPIRONOLACTONE
     Dosage: DOSE UNKNOWN
     Route: 048
     Dates: start: 20220401, end: 20220520
  11. HERBALS [Concomitant]
     Active Substance: HERBALS
     Dosage: DOSE UNKNOWN
     Route: 048
     Dates: start: 20220404, end: 20220519
  12. BISOPROLOL [Concomitant]
     Active Substance: BISOPROLOL
     Dosage: DOSE UNKNOWN
     Route: 048
     Dates: start: 20220408, end: 20220520
  13. PIMOBENDAN [Concomitant]
     Active Substance: PIMOBENDAN
     Dosage: DOSE UNKNOWN
     Route: 048
     Dates: start: 20220408, end: 20220519
  14. JARDIANCE [Concomitant]
     Active Substance: EMPAGLIFLOZIN
     Dosage: DOSE UNKNOWN
     Route: 048
     Dates: start: 20220409, end: 20220506
  15. AZOSEMIDE [Concomitant]
     Active Substance: AZOSEMIDE
     Dosage: DOSE UNKNOWN
     Route: 048
     Dates: start: 20220409, end: 20220512
  16. IVABRADINE HYDROCHLORIDE [Concomitant]
     Active Substance: IVABRADINE HYDROCHLORIDE
     Dosage: DOSE UNKNOWN
     Route: 048
     Dates: start: 20220429, end: 20220512

REACTIONS (3)
  - Interstitial lung disease [Fatal]
  - Cardiac failure [Unknown]
  - Atypical pneumonia [Unknown]

NARRATIVE: CASE EVENT DATE: 20220419
